FAERS Safety Report 9059844 (Version 1)
Quarter: 2013Q1

REPORT INFORMATION
  Report Type: Report from Study
  Country: CA (occurrence: CA)
  Receive Date: 20130212
  Receipt Date: 20130212
  Transmission Date: 20140127
  Serious: Yes (Other)
  Sender: FDA-Public Use
  Company Number: CA-JNJFOC-20130201737

PATIENT
  Sex: Male
  Weight: 78 kg

DRUGS (3)
  1. REMICADE [Suspect]
     Indication: CROHN^S DISEASE
     Route: 042
     Dates: start: 20120917
  2. PREDNISONE [Concomitant]
     Route: 065
  3. PANTOPRAZOLE [Concomitant]
     Route: 065

REACTIONS (1)
  - Hand fracture [Unknown]
